FAERS Safety Report 15868778 (Version 3)
Quarter: 2019Q2

REPORT INFORMATION
  Report Type: Report from Study
  Country: CA (occurrence: CA)
  Receive Date: 20190125
  Receipt Date: 20190403
  Transmission Date: 20190711
  Serious: Yes (Hospitalization, Congenital Anomaly)
  Sender: FDA-Public Use
  Company Number: CA-JNJFOC-20190123862

PATIENT
  Age: 0 Year
  Sex: Female

DRUGS (2)
  1. REMICADE [Suspect]
     Active Substance: INFLIXIMAB
     Indication: COLITIS ULCERATIVE
     Dosage: STRENGTH = 100 MG??PARENT DOSING
     Route: 064
     Dates: start: 20170525
  2. IMURAN [Concomitant]
     Active Substance: AZATHIOPRINE
     Indication: COLITIS ULCERATIVE
     Dosage: STRENGTH = 50 MG
     Route: 048
     Dates: start: 20170717, end: 20190121

REACTIONS (6)
  - Foetal exposure during pregnancy [Recovered/Resolved]
  - Cardiomegaly [Recovered/Resolved]
  - Atrial septal defect [Not Recovered/Not Resolved]
  - Oxygen saturation decreased [Recovered/Resolved]
  - Maternal exposure during breast feeding [Recovered/Resolved]
  - Transient tachypnoea of the newborn [Recovered/Resolved]

NARRATIVE: CASE EVENT DATE: 201901
